FAERS Safety Report 8947285 (Version 2)
Quarter: 2015Q2

REPORT INFORMATION
  Report Type: Report from Study
  Country: FR (occurrence: FR)
  Receive Date: 20121205
  Receipt Date: 20150601
  Transmission Date: 20150821
  Serious: Yes (Death, Hospitalization)
  Sender: FDA-Public Use
  Company Number: FR-ROCHE-1163441

PATIENT
  Age: 45 Year
  Sex: Female

DRUGS (9)
  1. ZELITREX [Concomitant]
     Active Substance: VALACYCLOVIR HYDROCHLORIDE
  2. INFLIXIMAB [Concomitant]
     Active Substance: INFLIXIMAB
  3. AZATHIOPRINE. [Concomitant]
     Active Substance: AZATHIOPRINE
     Route: 065
  4. ANAKINRA [Concomitant]
     Active Substance: ANAKINRA
  5. ABATACEPT [Concomitant]
     Active Substance: ABATACEPT
  6. RITUXIMAB [Suspect]
     Active Substance: RITUXIMAB
     Indication: RHEUMATOID ARTHRITIS
     Dosage: DAY 1: 25/OCT/2007?DAY 15: 08/NOV/2007
     Route: 042
     Dates: start: 20071025
  7. ADALIMUMAB [Concomitant]
     Active Substance: ADALIMUMAB
  8. CORTANCYL [Concomitant]
     Active Substance: PREDNISONE
     Route: 065
  9. TOCILIZUMAB [Concomitant]
     Active Substance: TOCILIZUMAB
     Route: 065

REACTIONS (10)
  - Herpes zoster [Unknown]
  - Laryngeal oedema [Fatal]
  - Septic shock [Not Recovered/Not Resolved]
  - Bronchitis [Recovered/Resolved]
  - Osteoarthritis [Not Recovered/Not Resolved]
  - Respiratory tract congestion [Fatal]
  - Mycobacterial infection [Unknown]
  - Bronchospasm [Fatal]
  - Psoas abscess [Not Recovered/Not Resolved]
  - Peritonitis [Not Recovered/Not Resolved]

NARRATIVE: CASE EVENT DATE: 2008
